FAERS Safety Report 7179599-0 (Version None)
Quarter: 2010Q4

REPORT INFORMATION
  Report Type: 
  Country: None (occurrence: None)
  Receive Date: 20101221
  Receipt Date: 20100329
  Transmission Date: 20110411
  Serious: Yes (Other)
  Sender: FDA-Public Use
  Company Number: NL-ROCHE-694700

PATIENT
  Sex: Female

DRUGS (1)
  1. BONIVA [Suspect]
     Indication: OSTEOPOROSIS
     Dosage: THERAPY WITHDRAWN.
     Route: 048
     Dates: start: 20090501, end: 20090515

REACTIONS (2)
  - PAROPHTHALMIA [None]
  - VISUAL IMPAIRMENT [None]
